FAERS Safety Report 4526398-1 (Version None)
Quarter: 2004Q4

REPORT INFORMATION
  Report Type: 
  Country: None (occurrence: None)
  Receive Date: 20041214
  Receipt Date: 20030521
  Transmission Date: 20050328
  Serious: Yes (Other)
  Sender: FDA-Public Use
  Company Number: US-ROCHE-338560

PATIENT
  Age: 24 Year
  Sex: Female

DRUGS (1)
  1. ACCUTANE [Suspect]
     Indication: DRUG USE FOR UNKNOWN INDICATION
     Route: 065
     Dates: start: 19951123

REACTIONS (9)
  - ABNORMAL BEHAVIOUR [None]
  - DEPRESSION [None]
  - DRUG EXPOSURE DURING PREGNANCY [None]
  - EMOTIONAL DISORDER [None]
  - HEADACHE [None]
  - MENTAL DISORDER [None]
  - NAUSEA [None]
  - PREGNANCY [None]
  - SUICIDAL IDEATION [None]
